FAERS Safety Report 6375834-7 (Version None)
Quarter: 2009Q3

REPORT INFORMATION
  Report Type: 
  Country: None (occurrence: None)
  Receive Date: 20090924
  Receipt Date: 20090921
  Transmission Date: 20100115
  Serious: Yes (Hospitalization, Other)
  Sender: FDA-Public Use
  Company Number: US-ELI_LILLY_AND_COMPANY-US200909004933

PATIENT
  Sex: Female
  Weight: 77.098 kg

DRUGS (16)
  1. BYETTA [Suspect]
     Indication: TYPE 2 DIABETES MELLITUS
     Dosage: 5 UG, 2/D
     Route: 058
     Dates: start: 20061101, end: 20061201
  2. BYETTA [Suspect]
     Dosage: 10 UG, 2/D
     Route: 058
     Dates: start: 20061201
  3. GLUCOPHAGE [Concomitant]
     Dosage: 500 MG, 2/D
  4. LISINOPRIL [Concomitant]
     Dosage: 10 MG, DAILY (1/D)
  5. SIMVASTATIN [Concomitant]
     Dosage: 20 MG, DAILY (1/D)
  6. SINGULAIR [Concomitant]
     Dosage: UNK, DAILY (1/D)
  7. LEVOTHYROXINE SODIUM [Concomitant]
     Dosage: 25 MG, DAILY (1/D)
  8. CELEXA [Concomitant]
     Dosage: 20 MG, DAILY (1/D)
  9. MULTI-VITAMIN [Concomitant]
     Dosage: UNK, DAILY (1/D)
  10. ASPIRIN [Concomitant]
     Dosage: 81 MG, UNKNOWN
  11. CALCIUM [Concomitant]
     Dosage: UNK, DAILY (1/D)
  12. VITAMIN B COMPLEX CAP [Concomitant]
     Dosage: UNK, DAILY (1/D)
  13. VITAMIN E /001105/ [Concomitant]
     Dosage: UNK, DAILY (1/D)
  14. ASCORBIC ACID [Concomitant]
     Dosage: UNK, DAILY (1/D)
  15. ECHINACEA /01323501/ [Concomitant]
     Dosage: UNK, DAILY (1/D)
  16. GLUCOSAMINE [Concomitant]
     Dosage: UNK, DAILY (1/D)

REACTIONS (7)
  - BLOOD GLUCOSE INCREASED [None]
  - BLOOD PRESSURE DECREASED [None]
  - CARDIAC ENZYMES INCREASED [None]
  - INFECTED CYST [None]
  - MYOCARDIAL INFARCTION [None]
  - PYREXIA [None]
  - WEIGHT INCREASED [None]
